FAERS Safety Report 8421409-5 (Version None)
Quarter: 2012Q2

REPORT INFORMATION
  Report Type: 
  Country: None (occurrence: None)
  Receive Date: 20120608
  Receipt Date: 20120528
  Transmission Date: 20120825
  Serious: Yes (Hospitalization)
  Sender: FDA-Public Use
  Company Number: CA-JNJFOC-20120517514

PATIENT
  Sex: Female
  Weight: 53.07 kg

DRUGS (16)
  1. AMITRIPTYLINE HCL [Concomitant]
     Route: 048
  2. PREMARIN [Concomitant]
     Route: 048
  3. FOSAMAX [Concomitant]
  4. VITAMIN B-12 [Concomitant]
     Route: 030
  5. ASPIRIN [Concomitant]
     Route: 048
  6. MESALAMINE [Concomitant]
     Route: 048
  7. METHOTREXATE [Suspect]
     Indication: CROHN'S DISEASE
     Dates: end: 20120501
  8. TRAZODONE HCL [Concomitant]
     Route: 048
  9. MAGNESIUM SULFATE [Concomitant]
     Route: 042
  10. REMICADE [Suspect]
     Indication: CROHN'S DISEASE
     Route: 042
     Dates: start: 20110316
  11. FOLIC ACID [Concomitant]
     Route: 048
  12. ADVAIR DISKUS 100/50 [Concomitant]
     Route: 055
  13. RABEPRAZOLE SODIUM [Concomitant]
     Route: 048
  14. SYNTHROID [Concomitant]
     Route: 048
  15. MAGNESIUM [Concomitant]
     Route: 048
  16. CELEBREX [Concomitant]
     Route: 048

REACTIONS (4)
  - PANCYTOPENIA [None]
  - SMALL INTESTINAL OBSTRUCTION [None]
  - CROHN'S DISEASE [None]
  - AGRANULOCYTOSIS [None]
